FAERS Safety Report 5316354-8 (Version None)
Quarter: 2007Q2

REPORT INFORMATION
  Report Type: 
  Country: None (occurrence: None)
  Receive Date: 20070430
  Receipt Date: 20070420
  Transmission Date: 20071010
  Serious: Yes (Hospitalization)
  Sender: FDA-Public Use
  Company Number: 155173USA

PATIENT
  Age: 76 Year
  Sex: Female

DRUGS (2)
  1. FLUOROURACIL [Suspect]
     Indication: NEOPLASM MALIGNANT
     Dosage: 225 MG/M2
     Dates: start: 20070312, end: 20070330
  2. RADIATION THERAPY [Suspect]
     Indication: NEOPLASM MALIGNANT
     Dates: start: 20070312, end: 20070402

REACTIONS (6)
  - COLONIC OBSTRUCTION [None]
  - ILEUS [None]
  - PERITONITIS [None]
  - PROCTITIS [None]
  - RECTAL CANCER [None]
  - SIGMOIDITIS [None]
